FAERS Safety Report 14403230 (Version 1)
Quarter: 2018Q1

REPORT INFORMATION
  Report Type: Spontaneous
  Country: US (occurrence: US)
  Receive Date: 20180117
  Receipt Date: 20180117
  Transmission Date: 20180509
  Serious: No
  Sender: FDA-Public Use
  Company Number: US-ASTRAZENECA-2018SE02631

PATIENT
  Age: 31503 Day
  Sex: Male
  Weight: 81.6 kg

DRUGS (6)
  1. TUDORZA PRESSAIR [Suspect]
     Active Substance: ACLIDINIUM BROMIDE
     Indication: CHRONIC OBSTRUCTIVE PULMONARY DISEASE
     Route: 055
     Dates: start: 2012
  2. SALINE SOLUTION VIA NEBULIZER [Concomitant]
     Indication: CHRONIC OBSTRUCTIVE PULMONARY DISEASE
     Dosage: 7% SOLUTION IN 4ML AS NEEDED
     Route: 055
  3. SALINE SOLUTION VIA NEBULIZER [Concomitant]
     Indication: PULMONARY CONGESTION
     Dosage: 7% SOLUTION IN 4ML AS NEEDED
     Route: 055
  4. PROAIR RESCUE INHALER [Concomitant]
     Indication: CHRONIC OBSTRUCTIVE PULMONARY DISEASE
     Dosage: ONE TO TWO PUFFS EVERY SIX HOURS AS NEEDED
     Route: 055
     Dates: start: 2012
  5. PROAIR RESCUE INHALER [Concomitant]
     Indication: CHRONIC OBSTRUCTIVE PULMONARY DISEASE
     Dosage: ALBUTEROL VIA NEBULIZER 2.5 MG
     Route: 055
     Dates: start: 2012
  6. FLOVENT [Concomitant]
     Active Substance: FLUTICASONE PROPIONATE
     Indication: CHRONIC OBSTRUCTIVE PULMONARY DISEASE
     Route: 055

REACTIONS (5)
  - Intentional product misuse [Not Recovered/Not Resolved]
  - Device failure [Unknown]
  - Pulmonary congestion [Not Recovered/Not Resolved]
  - Circumstance or information capable of leading to medication error [Not Recovered/Not Resolved]
  - Device malfunction [Unknown]

NARRATIVE: CASE EVENT DATE: 20171230
